FAERS Safety Report 18205958 (Version 5)
Quarter: 2024Q3

REPORT INFORMATION
  Report Type: Report from Study
  Country: US (occurrence: US)
  Receive Date: 20200827
  Receipt Date: 20240826
  Transmission Date: 20241016
  Serious: Yes (Hospitalization, Other)
  Sender: JAZZ
  Company Number: US-JAZZ-2020-US-010797

PATIENT
  Age: 34 Year
  Sex: Male

DRUGS (17)
  1. XYREM [Suspect]
     Active Substance: SODIUM OXYBATE
     Indication: Narcolepsy
     Dosage: 2.25 GRAM, BID
     Route: 048
     Dates: start: 201006, end: 201010
  2. XYREM [Suspect]
     Active Substance: SODIUM OXYBATE
     Indication: Cataplexy
     Dosage: DOSE ADJUSTMENT
     Route: 048
     Dates: start: 201010, end: 2010
  3. XYREM [Suspect]
     Active Substance: SODIUM OXYBATE
     Indication: Somnolence
     Dosage: 4.5 GRAM, BID
     Route: 048
     Dates: start: 2010
  4. XYREM [Suspect]
     Active Substance: SODIUM OXYBATE
     Dosage: UNK
  5. BENADRYL [Suspect]
     Active Substance: DIPHENHYDRAMINE HYDROCHLORIDE
     Indication: Product used for unknown indication
  6. ADDERALL [Suspect]
     Active Substance: AMPHETAMINE ASPARTATE\AMPHETAMINE SULFATE\DEXTROAMPHETAMINE SACCHARATE\DEXTROAMPHETAMINE SULFATE
     Indication: Product used for unknown indication
  7. PANTOPRAZOLE SODIUM [Concomitant]
     Active Substance: PANTOPRAZOLE SODIUM
     Indication: Product used for unknown indication
     Dosage: UNK
     Dates: start: 201804
  8. DOXEPIN [Concomitant]
     Active Substance: DOXEPIN
     Indication: Product used for unknown indication
     Dosage: UNK
     Dates: start: 201601
  9. MEDROL [Concomitant]
     Active Substance: METHYLPREDNISOLONE
     Indication: Product used for unknown indication
     Dosage: UNK
     Dates: start: 20150302, end: 20150308
  10. TOPAMAX [Concomitant]
     Active Substance: TOPIRAMATE
     Indication: Product used for unknown indication
     Dosage: UNK
     Dates: start: 20150101
  11. SUMATRIPTAN SUCCINATE [Concomitant]
     Active Substance: SUMATRIPTAN SUCCINATE
     Indication: Product used for unknown indication
     Dosage: UNK
     Dates: start: 20130701
  12. CYMBALTA [Concomitant]
     Active Substance: DULOXETINE HYDROCHLORIDE
     Indication: Product used for unknown indication
     Dosage: UNK
     Dates: end: 201503
  13. CYMBALTA [Concomitant]
     Active Substance: DULOXETINE HYDROCHLORIDE
     Dosage: UNK
     Dates: end: 201503
  14. IBUPROFEN [Concomitant]
     Active Substance: IBUPROFEN
     Indication: Product used for unknown indication
  15. PROVIGIL [Concomitant]
     Active Substance: MODAFINIL
     Indication: Product used for unknown indication
     Dosage: UNK
     Dates: end: 201503
  16. PROVIGIL [Concomitant]
     Active Substance: MODAFINIL
     Dosage: UNK
     Dates: end: 201503
  17. ZOLOFT [Concomitant]
     Active Substance: SERTRALINE HYDROCHLORIDE
     Indication: Product used for unknown indication

REACTIONS (4)
  - Nephrolithiasis [Unknown]
  - Hypertension [Not Recovered/Not Resolved]
  - Drug hypersensitivity [Unknown]
  - Sleep apnoea syndrome [Unknown]

NARRATIVE: CASE EVENT DATE: 20160601
